FAERS Safety Report 19213211 (Version 4)
Quarter: 2021Q2

REPORT INFORMATION
  Report Type: Report from Study
  Country: US (occurrence: US)
  Receive Date: 20210504
  Receipt Date: 20210617
  Transmission Date: 20210717
  Serious: Yes (Hospitalization)
  Sender: FDA-Public Use
  Company Number: US-PFIZER INC-2021495029

PATIENT
  Age: 58 Year
  Sex: Male
  Weight: 76.6 kg

DRUGS (26)
  1. MEKTOVI [Suspect]
     Active Substance: BINIMETINIB
     Dosage: 30 MG, 2X/DAY (30 MG, BID (C2D1)
     Route: 048
     Dates: start: 20210217
  2. IDE 196 [Suspect]
     Active Substance: DAROVASERTIB
     Dosage: 200 MG, 2X/DAY (200 MG, BID (C3D1)
     Route: 048
     Dates: start: 20210316
  3. FUROSEMIDE. [Concomitant]
     Active Substance: FUROSEMIDE
     Dosage: 20 MG, 1X/DAY
     Route: 048
     Dates: start: 20210312, end: 20210315
  4. OCTREOTIDE. [Concomitant]
     Active Substance: OCTREOTIDE
     Dosage: 20 MG, CYCLIC (20 MG,Q4W)
     Route: 030
     Dates: start: 20210420
  5. DOXYCYCLINE. [Concomitant]
     Active Substance: DOXYCYCLINE
     Dosage: UNK
     Dates: start: 20210204
  6. MEKTOVI [Suspect]
     Active Substance: BINIMETINIB
     Dosage: 30 MG, 2X/DAY (30 MG, BID (C3D1)
     Route: 048
     Dates: start: 20210316
  7. IDE 196 [Suspect]
     Active Substance: DAROVASERTIB
     Dosage: 200 MG, 2X/DAY (200 MG, BID (C4D1)
     Route: 048
     Dates: start: 20210413, end: 20210510
  8. TRIAMCINOLONE [Concomitant]
     Active Substance: TRIAMCINOLONE
     Dosage: UNK
     Dates: start: 20210204
  9. APIXABAN [Concomitant]
     Active Substance: APIXABAN
     Indication: EMBOLISM
     Dosage: 5 MG, 2X/DAY
     Route: 048
     Dates: start: 20210430
  10. MEKTOVI [Suspect]
     Active Substance: BINIMETINIB
     Indication: UVEAL MELANOMA
     Dosage: 30 MG, 2X/DAY (30 MG, BID (C1D1)
     Route: 048
     Dates: start: 20210121
  11. FUROSEMIDE. [Concomitant]
     Active Substance: FUROSEMIDE
     Dosage: 40 MG
     Route: 048
     Dates: start: 20210510, end: 20210514
  12. CLINDAMYCIN PHOSPHATE. [Concomitant]
     Active Substance: CLINDAMYCIN PHOSPHATE
     Dosage: UNK
     Dates: start: 20210316
  13. DRONABINOL. [Concomitant]
     Active Substance: DRONABINOL
     Indication: DECREASED APPETITE
     Dosage: 2.5 MG, 2X/DAY
     Route: 048
     Dates: start: 20210428, end: 20210503
  14. LOPERAMIDE [Concomitant]
     Active Substance: LOPERAMIDE
     Indication: DIARRHOEA
     Dosage: 2 MG, 4X/DAY
     Route: 048
     Dates: start: 20210504
  15. IDE 196 [Suspect]
     Active Substance: DAROVASERTIB
     Indication: UVEAL MELANOMA
     Dosage: 200 MG, 2X/DAY (200 MG, BID (C1D1)
     Route: 048
     Dates: start: 20210121
  16. CENTRUM PLUS [Concomitant]
     Active Substance: VITAMINS
     Dosage: UNK
     Dates: start: 2010
  17. LOMOTIL [LOPERAMIDE HYDROCHLORIDE] [Concomitant]
     Active Substance: LOPERAMIDE HYDROCHLORIDE
     Dosage: 2 DF, AS NEEDED
     Route: 048
     Dates: start: 20210121, end: 20210423
  18. PIPERACILLIN AND TAZOBACTAM [Concomitant]
     Active Substance: PIPERACILLIN SODIUM\TAZOBACTAM SODIUM
     Indication: COLITIS
     Dosage: 3.375 G, 4X/DAY (3.375 G, Q6H)
     Route: 042
     Dates: start: 20210428, end: 20210430
  19. MEKTOVI [Suspect]
     Active Substance: BINIMETINIB
     Dosage: 30 MG, 2X/DAY (30 MG, BID (C4D1)
     Route: 048
     Dates: start: 20210413, end: 20210510
  20. IDE 196 [Suspect]
     Active Substance: DAROVASERTIB
     Dosage: 200 MG, 2X/DAY (200 MG, BID (C2D1)
     Route: 048
     Dates: start: 20210217
  21. FUROSEMIDE. [Concomitant]
     Active Substance: FUROSEMIDE
     Dosage: 40 MG, 1X/DAY
     Route: 048
     Dates: start: 20210405, end: 20210503
  22. ENOXAPARIN [Concomitant]
     Active Substance: ENOXAPARIN
     Indication: EMBOLISM
     Dosage: 60 MG, 2X/DAY
     Route: 058
     Dates: start: 20210428, end: 20210430
  23. MEKTOVI [Suspect]
     Active Substance: BINIMETINIB
     Dosage: 30 MG, 2X/DAY (30 MG, BID (C1D15))
     Route: 048
     Dates: start: 20210204
  24. IDE 196 [Suspect]
     Active Substance: DAROVASERTIB
     Dosage: 200 MG, 2X/DAY (200 MG, BID (C1D15)
     Route: 048
     Dates: start: 20210204, end: 20210216
  25. SODIUM SULFACETAMIDE AND SULFUR [Concomitant]
     Dosage: UNK
     Dates: start: 20210212
  26. AMOXICILLIN/CLAVULANATE POTASSIUM [Concomitant]
     Active Substance: AMOXICILLIN\CLAVULANATE POTASSIUM
     Indication: DIARRHOEA
     Dosage: 1 DF, 2X/DAY (1 TABLET, Q12H)
     Route: 048
     Dates: start: 20210430, end: 20210501

REACTIONS (1)
  - Fall [Recovered/Resolved]

NARRATIVE: CASE EVENT DATE: 20210426
